FAERS Safety Report 8317150-X (Version None)
Quarter: 2012Q2

REPORT INFORMATION
  Report Type: 
  Country: None (occurrence: None)
  Receive Date: 20120425
  Receipt Date: 20120409
  Transmission Date: 20120825
  Serious: Yes (Hospitalization, Other)
  Sender: FDA-Public Use
  Company Number: 2012MA004741

PATIENT
  Age: 77 Year
  Sex: Male

DRUGS (1)
  1. CARBIDOPA + LEVODOPA [Suspect]
     Indication: PARKINSON'S DISEASE
     Dosage: ;Q4H;PO
     Route: 048

REACTIONS (8)
  - POSTURE ABNORMAL [None]
  - BLUNTED AFFECT [None]
  - HYPERHIDROSIS [None]
  - RESTING TREMOR [None]
  - COGWHEEL RIGIDITY [None]
  - RESPIRATORY DISTRESS [None]
  - DYSKINESIA [None]
  - GAIT DISTURBANCE [None]
